FAERS Safety Report 18241678 (Version 1)
Quarter: 2020Q3

REPORT INFORMATION
  Report Type: Spontaneous
  Country: GB (occurrence: GB)
  Receive Date: 20200908
  Receipt Date: 20200908
  Transmission Date: 20201103
  Serious: Yes (Disabling, Other)
  Sender: FDA-Public Use
  Company Number: GB-DRREDDYS-GER/UKI/20/0126550

PATIENT
  Age: 85 Year
  Sex: Male
  Weight: 75 kg

DRUGS (14)
  1. SERTRALINE [Concomitant]
     Active Substance: SERTRALINE HYDROCHLORIDE
     Indication: AFFECTIVE DISORDER
     Dosage: INSTALMENTS: DISPENSE WEEKLY
     Route: 048
     Dates: start: 20200608, end: 20200626
  2. SPIRONOLACTONE. [Concomitant]
     Active Substance: SPIRONOLACTONE
     Indication: PRODUCT USED FOR UNKNOWN INDICATION
     Dosage: INSTALMENTS: DISPENSE WEEKLY. EVERY MORNING (FOR HEART)
     Route: 048
     Dates: start: 20200608
  3. FUROSEMIDE. [Concomitant]
     Active Substance: FUROSEMIDE
     Indication: FLUID RETENTION
     Dosage: INSTALMENTS: DISPENSE WEEKLY. EVERY MORNING
     Dates: start: 20200608
  4. ENALAPRIL [Concomitant]
     Active Substance: ENALAPRIL
     Indication: BLOOD PRESSURE MEASUREMENT
     Dosage: INSTALMENTS: DISPENSE WEEKLY
     Route: 048
     Dates: start: 20200608
  5. SODIUM CHLORIDE SOLUTION 0.9 PERCENT [Concomitant]
     Active Substance: SODIUM CHLORIDE
     Indication: PRODUCT USED FOR UNKNOWN INDICATION
     Dosage: IRRIGATION SOLUTION. AS DIRECT
     Dates: start: 20200620
  6. DONEPEZIL. [Suspect]
     Active Substance: DONEPEZIL
     Indication: DEMENTIA
     Route: 048
  7. ATORVASTATIN [Concomitant]
     Active Substance: ATORVASTATIN
     Indication: BLOOD CHOLESTEROL
     Dosage: INSTALMENTS: DISPENSE WEEKLY. IN THE MORNING
     Route: 048
     Dates: start: 20200608
  8. EDOXABAN [Concomitant]
     Active Substance: EDOXABAN TOSYLATE
     Indication: ATRIAL FIBRILLATION
     Dosage: INSTALMENTS: DISPENSE WEEKLY. IN THE MORNING (TO THIN BLOOD FOR AF)
     Route: 048
     Dates: start: 20200608
  9. PARACETAMOL [Concomitant]
     Active Substance: ACETAMINOPHEN
     Indication: PAIN
     Dosage: 1 TO 2 TABLET(S) EVERY FOUR TO SIX HOURS, MAXIMUM 8 TABLETS IN 24 HOURS
     Route: 048
     Dates: start: 20200617
  10. BISOPROLOL [Concomitant]
     Active Substance: BISOPROLOL
     Indication: BLOOD PRESSURE MEASUREMENT
     Dosage: INSTALMENTS: DISPENSE WEEKLY
     Route: 048
     Dates: start: 20200608
  11. FOLIC ACID. [Concomitant]
     Active Substance: FOLIC ACID
     Indication: PRODUCT USED FOR UNKNOWN INDICATION
     Dosage: INSTALMENTS: DISPENSE WEEKLY. VITAMIN
     Route: 048
     Dates: start: 20200608
  12. SERTRALINE [Concomitant]
     Active Substance: SERTRALINE HYDROCHLORIDE
     Indication: AFFECTIVE DISORDER
     Dosage: FOR 7 DAYS THEN STOP
     Dates: start: 20200608
  13. MAIZE STARCH [Concomitant]
     Indication: PRODUCT USED FOR UNKNOWN INDICATION
     Dosage: AS DIRECTED (THICKENER)
     Dates: start: 20200608
  14. COLECALCIFEROL [Concomitant]
     Active Substance: CHOLECALCIFEROL
     Indication: VITAMIN SUPPLEMENTATION
     Dosage: INSTALMENTS: DISPENSE WEEKLY
     Route: 048
     Dates: start: 20200608

REACTIONS (3)
  - Diarrhoea [Recovered/Resolved]
  - Anal incontinence [Recovered/Resolved]
  - Sedation [Recovered/Resolved]

NARRATIVE: CASE EVENT DATE: 20200624
